FAERS Safety Report 4888817-0 (Version None)
Quarter: 2005Q4

REPORT INFORMATION
  Report Type: 
  Country: None (occurrence: None)
  Receive Date: 20051216
  Receipt Date: 20050920
  Transmission Date: 20060501
  Serious: No
  Sender: FDA-Public Use
  Company Number: USA0509108124

PATIENT
  Age: 84 Year
  Sex: Male

DRUGS (7)
  1. CIALIS [Suspect]
     Indication: ERECTILE DYSFUNCTION
     Dosage: 20 MG
  2. LOTREL [Concomitant]
  3. ASPIRIN [Concomitant]
  4. DITROPAN XL [Concomitant]
  5. LOVASTATIN [Concomitant]
  6. SYNTHROID [Concomitant]
  7. NADOLOL [Concomitant]

REACTIONS (3)
  - DRY MOUTH [None]
  - SPONTANEOUS PENILE ERECTION [None]
  - THERAPEUTIC RESPONSE DECREASED [None]
